FAERS Safety Report 6396731-7 (Version None)
Quarter: 2009Q4

REPORT INFORMATION
  Report Type: 
  Country: None (occurrence: None)
  Receive Date: 20091012
  Receipt Date: 20090810
  Transmission Date: 20100525
  Serious: No
  Sender: FDA-Public Use
  Company Number: US-ASTRAZENECA-2009UW02163

PATIENT
  Age: 74 Year
  Sex: Female

DRUGS (9)
  1. SYMBICORT [Suspect]
     Route: 055
  2. VITAMIN B3 [Concomitant]
  3. CLONIDINE HCL [Concomitant]
  4. MAXZIDE [Concomitant]
  5. NORVASC [Concomitant]
  6. ALBUTEROL [Concomitant]
  7. ZANTAC [Concomitant]
  8. ALLEGRA [Concomitant]
  9. PRAVASTATIN [Concomitant]

REACTIONS (4)
  - INSOMNIA [None]
  - LYMPHADENOPATHY [None]
  - MUSCLE SPASMS [None]
  - MYALGIA [None]
